FAERS Safety Report 9485108 (Version 2)
Quarter: 2013Q3

REPORT INFORMATION
  Report Type: Spontaneous
  Country: BR (occurrence: BR)
  Receive Date: 20130828
  Receipt Date: 20130828
  Transmission Date: 20140515
  Serious: Yes (Death)
  Sender: FDA-Public Use
  Company Number: BR-BRACCO-000131

PATIENT
  Age: 82 Year
  Sex: Male
  Weight: 70 kg

DRUGS (1)
  1. IOPAMIRON [Suspect]
     Indication: ANGIOGRAM
     Route: 042
     Dates: start: 20130819, end: 20130819

REACTIONS (1)
  - Anaphylactic shock [Fatal]
